FAERS Safety Report 10208016 (Version 1)
Quarter: 2014Q2

REPORT INFORMATION
  Report Type: Spontaneous
  Country: US (occurrence: None)
  Receive Date: 20140529
  Receipt Date: 20140529
  Transmission Date: 20141212
  Serious: No
  Sender: FDA-Public Use
  Company Number: None

PATIENT
  Age: 68 Year
  Sex: Female
  Weight: 86.18 kg

DRUGS (2)
  1. KENALOG [Suspect]
  2. SINUS MEDICATION [Concomitant]

REACTIONS (6)
  - Blindness unilateral [None]
  - Product contamination [None]
  - Vision blurred [None]
  - Eye irritation [None]
  - Eyelid ptosis [None]
  - Eye pain [None]
